FAERS Safety Report 10087164 (Version 2)
Quarter: 2014Q2

REPORT INFORMATION
  Report Type: Spontaneous
  Country: US (occurrence: US)
  Receive Date: 20140418
  Receipt Date: 20140430
  Transmission Date: 20141212
  Serious: Yes (Other)
  Sender: FDA-Public Use
  Company Number: US-ABBVIE-14P-163-1227219-00

PATIENT
  Age: 60 Year
  Sex: Male

DRUGS (2)
  1. LEUPLIN [Suspect]
     Indication: PROSTATOMEGALY
     Route: 050
  2. BICALUTAMIDE [Suspect]
     Indication: PROSTATOMEGALY
     Dosage: 1 DAYS

REACTIONS (1)
  - Pituitary haemorrhage [Recovered/Resolved]
